FAERS Safety Report 4351538-7 (Version None)
Quarter: 2004Q2

REPORT INFORMATION
  Report Type: 
  Country: None (occurrence: None)
  Receive Date: 20040428
  Receipt Date: 20040409
  Transmission Date: 20050107
  Serious: Yes (Hospitalization)
  Sender: FDA-Public Use
  Company Number: US_0403101709

PATIENT
  Age: 46 Year
  Sex: Female

DRUGS (7)
  1. GEMZAR [Suspect]
     Indication: OVARIAN CANCER
     Dosage: 800 MG/M2/21 DAY CYCLE
     Dates: start: 20040105, end: 52000301
  2. CARBOPLATIN [Concomitant]
  3. LEXAPRO [Concomitant]
  4. ATIVAN [Concomitant]
  5. PREVACID [Concomitant]
  6. NEUPOGEN [Concomitant]
  7. NEULASTA (PEGFILGRASTAIM) [Concomitant]

REACTIONS (14)
  - ARTHRALGIA [None]
  - BURNING SENSATION [None]
  - DIARRHOEA [None]
  - INFUSION RELATED REACTION [None]
  - INJECTION SITE HAEMORRHAGE [None]
  - INTERVERTEBRAL DISC PROTRUSION [None]
  - LOCALISED INFECTION [None]
  - MYALGIA [None]
  - NEOPLASM [None]
  - NEUTROPENIA [None]
  - OEDEMA PERIPHERAL [None]
  - PAIN IN EXTREMITY [None]
  - PYREXIA [None]
  - WHITE BLOOD CELL COUNT DECREASED [None]
